FAERS Safety Report 23766803 (Version 1)
Quarter: 2024Q2

REPORT INFORMATION
  Report Type: Spontaneous
  Country: US (occurrence: US)
  Receive Date: 20240422
  Receipt Date: 20240422
  Transmission Date: 20240715
  Serious: Yes (Death, Hospitalization, Other)
  Sender: FDA-Public Use
  Company Number: US-AMGEN-USASP2024077652

PATIENT
  Age: 64 Year
  Sex: Male

DRUGS (3)
  1. FILGRASTIM [Suspect]
     Active Substance: FILGRASTIM
     Indication: Haematopoietic stem cell mobilisation
     Dosage: UNK
     Route: 065
  2. MELPHALAN [Concomitant]
     Active Substance: MELPHALAN
     Indication: Product used for unknown indication
     Dosage: UNK
  3. MOZOBIL [Concomitant]
     Active Substance: PLERIXAFOR
     Indication: Haematopoietic stem cell mobilisation
     Dosage: UNK

REACTIONS (9)
  - Death [Fatal]
  - Engraftment syndrome [Unknown]
  - Venoocclusive liver disease [Unknown]
  - Renal failure [Unknown]
  - Graft versus host disease [Unknown]
  - Multiple organ dysfunction syndrome [Unknown]
  - Respiratory failure [Not Recovered/Not Resolved]
  - Disseminated intravascular coagulation [Unknown]
  - Staphylococcal skin infection [Unknown]
